FAERS Safety Report 26128620 (Version 2)
Quarter: 2025Q4

REPORT INFORMATION
  Report Type: Spontaneous
  Country: JP (occurrence: JP)
  Receive Date: 20251207
  Receipt Date: 20251218
  Transmission Date: 20260118
  Serious: Yes (Other)
  Sender: RECORDATI
  Company Number: JP-ORPHANEU-2025008727

PATIENT

DRUGS (3)
  1. ENJAYMO [Suspect]
     Active Substance: SUTIMLIMAB-JOME
     Indication: Product used for unknown indication
     Dosage: UNK
     Route: 065
  2. ENJAYMO [Suspect]
     Active Substance: SUTIMLIMAB-JOME
     Dosage: EVERY 2 WEEKS
     Route: 065
  3. ENJAYMO [Suspect]
     Active Substance: SUTIMLIMAB-JOME
     Dosage: UNK
     Route: 065
     Dates: start: 20251204

REACTIONS (4)
  - Haemolysis [Unknown]
  - Peripheral circulatory failure [Recovering/Resolving]
  - Haemoglobin decreased [Recovering/Resolving]
  - Cyanosis [Unknown]
